FAERS Safety Report 9303223 (Version 2)
Quarter: 2013Q3

REPORT INFORMATION
  Report Type: Spontaneous
  Country: BR (occurrence: BR)
  Receive Date: 20130522
  Receipt Date: 20130702
  Transmission Date: 20140515
  Serious: Yes (Other)
  Sender: FDA-Public Use
  Company Number: BR-AMGEN-BRASP2013035653

PATIENT
  Age: 69 Year
  Sex: Female
  Weight: 53 kg

DRUGS (5)
  1. ENBREL [Suspect]
     Indication: RHEUMATOID ARTHRITIS
     Dosage: 50 MG, ONCE WEEKLY
     Route: 058
     Dates: start: 201205
  2. LOSARTAN [Concomitant]
     Indication: HYPERTENSION
     Dosage: 50MG, TWICE DAILY
  3. VITAMIN B1 [Concomitant]
     Indication: SCIATICA
     Dosage: UNK
  4. DICLOFENAC [Concomitant]
     Dosage: UNK
  5. B COMPLEX                          /00212701/ [Concomitant]
     Indication: SCIATICA
     Dosage: UNK

REACTIONS (5)
  - Decreased appetite [Unknown]
  - Dyspepsia [Unknown]
  - Purulent discharge [Unknown]
  - Weight decreased [Not Recovered/Not Resolved]
  - Localised infection [Unknown]
